FAERS Safety Report 4832028-1 (Version None)
Quarter: 2005Q4

REPORT INFORMATION
  Report Type: 
  Country: None (occurrence: None)
  Receive Date: 20051116
  Receipt Date: 20051102
  Transmission Date: 20060501
  Serious: Yes (Other)
  Sender: FDA-Public Use
  Company Number: CIP05001873

PATIENT
  Age: 25 Year

DRUGS (7)
  1. DANTRIUM [Suspect]
     Indication: CEREBRAL PALSY
     Dosage: 25 MG DAILY (DIVIDED IN 3 DOSES), ORAL
     Route: 048
     Dates: start: 20030120, end: 20050803
  2. DIAZEPAM [Suspect]
     Indication: CEREBRAL PALSY
     Dosage: 5 MG DAILY (DIVIDED IN 3 DOSES), ORAL
     Route: 048
     Dates: start: 20030120, end: 20050803
  3. FAMOTIDINE [Concomitant]
  4. MALFA (MAGNESIUM HYDROXIDE, ALUMINIUM HYDROXIDE GEL) [Concomitant]
  5. MAGNESIUM OXIDE (MAGNESIUM OXIDE) [Concomitant]
  6. LAC B (LACTOBACILLUS BIFIDUS, LYOPHILIZED) [Concomitant]
  7. CEFOTIAM HYDROCHLORIDE [Concomitant]

REACTIONS (9)
  - ALANINE AMINOTRANSFERASE INCREASED [None]
  - ASPARTATE AMINOTRANSFERASE INCREASED [None]
  - ASTHENIA [None]
  - BLOOD ALKALINE PHOSPHATASE INCREASED [None]
  - BLOOD LACTATE DEHYDROGENASE INCREASED [None]
  - FATIGUE [None]
  - LIVER DISORDER [None]
  - PNEUMONIA [None]
  - RESPIRATORY TRACT INFECTION [None]
